FAERS Safety Report 5393105-2 (Version None)
Quarter: 2007Q3

REPORT INFORMATION
  Report Type: 
  Country: None (occurrence: None)
  Receive Date: 20070718
  Receipt Date: 20070704
  Transmission Date: 20080115
  Serious: Yes (Death)
  Sender: FDA-Public Use
  Company Number: 158415ISR

PATIENT
  Age: 80 Year
  Sex: Female

DRUGS (1)
  1. SIMVASTATIN [Suspect]
     Indication: RENAL FAILURE CHRONIC
     Dosage: (40 MG)
     Dates: start: 20070419, end: 20070524

REACTIONS (1)
  - ACUTE MYOCARDIAL INFARCTION [None]
